FAERS Safety Report 4823325-4 (Version None)
Quarter: 2005Q4

REPORT INFORMATION
  Report Type: 
  Country: None (occurrence: None)
  Receive Date: 20051108
  Receipt Date: 20051108
  Transmission Date: 20060501
  Serious: Yes (Other)
  Sender: FDA-Public Use
  Company Number: None

PATIENT
  Sex: Female
  Weight: 61.2356 kg

DRUGS (1)
  1. ORTHO EVRA [Suspect]
     Indication: CONTRACEPTION
     Dosage: PATCH   WEEKLY   TRANSDERMA
     Route: 062
     Dates: start: 20051001, end: 20051025

REACTIONS (1)
  - DEEP VEIN THROMBOSIS [None]
